FAERS Safety Report 9156891 (Version 1)
Quarter: 2013Q1

REPORT INFORMATION
  Report Type: Spontaneous
  Country: BR (occurrence: BR)
  Receive Date: 20130312
  Receipt Date: 20130312
  Transmission Date: 20140127
  Serious: Yes (Other)
  Sender: FDA-Public Use
  Company Number: PHHY2012BR097346

PATIENT
  Sex: Female
  Weight: 62 kg

DRUGS (3)
  1. EXELON [Suspect]
     Indication: DEMENTIA ALZHEIMER^S TYPE
     Dosage: 2 DF (1.5 MG TABLET), QD
     Route: 048
     Dates: start: 2010
  2. EXELON [Suspect]
     Dosage: 2 DF (3 MG TABLET), QD
     Route: 048
     Dates: end: 201212
  3. EXELON [Suspect]
     Dosage: 2 DF (6 MG TABLET), QD
     Route: 048
     Dates: start: 201212

REACTIONS (3)
  - Cerebrovascular accident [Recovering/Resolving]
  - Abasia [Recovering/Resolving]
  - Gait disturbance [Unknown]
